FAERS Safety Report 11343238 (Version 1)
Quarter: 2015Q3

REPORT INFORMATION
  Report Type: Spontaneous
  Country: DE (occurrence: DE)
  Receive Date: 20150806
  Receipt Date: 20150806
  Transmission Date: 20151125
  Serious: Yes (Hospitalization)
  Sender: FDA-Public Use
  Company Number: DE-DRREDDYS-GER/GER/15/0049689

PATIENT
  Age: 37 Year
  Sex: Female

DRUGS (11)
  1. ERGENYL CHRONO [Concomitant]
     Active Substance: VALPROIC ACID
     Indication: PRODUCT USED FOR UNKNOWN INDICATION
     Dates: start: 20100510, end: 20100512
  2. ERGENYL CHRONO [Concomitant]
     Active Substance: VALPROIC ACID
     Dates: start: 20100518
  3. CITALOPRAM [Suspect]
     Active Substance: CITALOPRAM HYDROBROMIDE
     Indication: PRODUCT USED FOR UNKNOWN INDICATION
     Dates: start: 20100325, end: 20100326
  4. CITALOPRAM [Interacting]
     Active Substance: CITALOPRAM HYDROBROMIDE
     Dates: start: 20100330, end: 20100331
  5. ELONTRIL [Interacting]
     Active Substance: BUPROPION HYDROCHLORIDE
     Dates: start: 20100420, end: 20100506
  6. ELONTRIL [Interacting]
     Active Substance: BUPROPION HYDROCHLORIDE
     Dates: start: 20100507, end: 20100515
  7. CITALOPRAM [Interacting]
     Active Substance: CITALOPRAM HYDROBROMIDE
     Dates: start: 20100327, end: 20100329
  8. ERGENYL CHRONO [Concomitant]
     Active Substance: VALPROIC ACID
     Dates: start: 20100515, end: 20100517
  9. ERGENYL CHRONO [Concomitant]
     Active Substance: VALPROIC ACID
     Dates: start: 20100513, end: 20100514
  10. JODID [Concomitant]
     Active Substance: IODINE
     Indication: PRODUCT USED FOR UNKNOWN INDICATION
     Dates: start: 20100414
  11. ELONTRIL [Interacting]
     Active Substance: BUPROPION HYDROCHLORIDE
     Indication: PRODUCT USED FOR UNKNOWN INDICATION
     Dates: start: 20100406, end: 20100419

REACTIONS (5)
  - Metrorrhagia [Recovered/Resolved]
  - Breast swelling [Recovered/Resolved]
  - Drug interaction [Unknown]
  - Abdominal pain [Recovered/Resolved]
  - Breast pain [Recovered/Resolved]

NARRATIVE: CASE EVENT DATE: 20100415
